FAERS Safety Report 8433477-5 (Version None)
Quarter: 2012Q2

REPORT INFORMATION
  Report Type: 
  Country: None (occurrence: None)
  Receive Date: 20120323
  Receipt Date: 20110707
  Transmission Date: 20120825
  Serious: Yes (Other)
  Sender: FDA-Public Use
  Company Number: 163-21880-11070909

PATIENT
  Age: 64 Year
  Sex: Male
  Weight: 81.1939 kg

DRUGS (3)
  1. DEXAMETHASONE [Concomitant]
  2. VELCADE [Concomitant]
  3. REVLIMID [Suspect]
     Indication: MULTIPLE MYELOMA
     Dosage: 15 MG, PER DAY FOR 21/28 DAYS, PO
     Route: 048
     Dates: start: 20110401, end: 20110707

REACTIONS (1)
  - RASH GENERALISED [None]
